FAERS Safety Report 12629110 (Version 1)
Quarter: 2016Q3

REPORT INFORMATION
  Report Type: Spontaneous
  Country: None (occurrence: None)
  Receive Date: 20160805
  Receipt Date: 20160805
  Transmission Date: 20161109
  Serious: Yes (Life-Threatening)
  Sender: FDA-Public Use
  Company Number: None

PATIENT
  Age: 73 Year
  Sex: Female

DRUGS (1)
  1. ALTEPLASE [Suspect]
     Active Substance: ALTEPLASE

REACTIONS (5)
  - Cough [None]
  - Erythema [None]
  - Endotracheal intubation complication [None]
  - Throat tightness [None]
  - Pharyngeal oedema [None]

NARRATIVE: CASE EVENT DATE: 20160727
